FAERS Safety Report 5377896-2 (Version None)
Quarter: 2007Q3

REPORT INFORMATION
  Report Type: 
  Country: None (occurrence: None)
  Receive Date: 20070703
  Receipt Date: 20070621
  Transmission Date: 20080115
  Serious: Yes (Other)
  Sender: FDA-Public Use
  Company Number: NL-MERCK-0706NLD00017

PATIENT

DRUGS (4)
  1. CRIXIVAN [Suspect]
     Route: 065
  2. RITONAVIR [Concomitant]
     Route: 065
  3. [THERAPY UNSPECIFIED] [Concomitant]
     Route: 065
  4. [THERAPY UNSPECIFIED] [Concomitant]
     Route: 065

REACTIONS (10)
  - DEHYDRATION [None]
  - HEPATIC FUNCTION ABNORMAL [None]
  - HEPATITIS [None]
  - JAUNDICE [None]
  - MALAISE [None]
  - NEPHROLITHIASIS [None]
  - POISONING [None]
  - RASH [None]
  - RENAL DISORDER [None]
  - VOMITING [None]
